FAERS Safety Report 6187559-1 (Version None)
Quarter: 2009Q2

REPORT INFORMATION
  Report Type: 
  Country: None (occurrence: None)
  Receive Date: 20090508
  Receipt Date: 20090423
  Transmission Date: 20091009
  Serious: Yes (Life-Threatening, Hospitalization)
  Sender: FDA-Public Use
  Company Number: 2009-01249

PATIENT
  Sex: Male
  Weight: 84 kg

DRUGS (8)
  1. VELCADE [Suspect]
     Indication: MULTIPLE MYELOMA
     Dosage: 2.6 MG, INTRAVENOUS
     Route: 042
     Dates: start: 20070305, end: 20071019
  2. FUROSEMIDE [Concomitant]
  3. QUINAPRIL AND HYDROCHLOROTHIAZIDE (HYDROCHLOROTHIAZIDE, QUINAPRIL HYDR [Concomitant]
  4. DIAZEPAM [Concomitant]
  5. ACENOCOUMAROL (ACENOCOUMAROL) [Concomitant]
  6. ACETAMINOPHEN [Concomitant]
  7. ZOPICLONE (ZOPICLONE) [Concomitant]
  8. FOSAMAX [Concomitant]

REACTIONS (4)
  - AMNESIA [None]
  - CEREBRAL INFARCTION [None]
  - MENTAL DISORDER [None]
  - SUICIDAL BEHAVIOUR [None]
